FAERS Safety Report 4673833-4 (Version None)
Quarter: 2005Q2

REPORT INFORMATION
  Report Type: 
  Country: None (occurrence: None)
  Receive Date: 20050523
  Receipt Date: 20050321
  Transmission Date: 20051028
  Serious: Yes (Other)
  Sender: FDA-Public Use
  Company Number: MED000062

PATIENT
  Age: 19 Year
  Sex: Female

DRUGS (3)
  1. LACTATED RINGER'S [Suspect]
     Indication: ABDOMINAL PAIN
     Dosage: INTRAVENOUS
     Route: 042
     Dates: start: 20050321
  2. MIDOL [Concomitant]
  3. ACID REDUCER [Concomitant]

REACTIONS (2)
  - DYSPNOEA [None]
  - SWELLING FACE [None]
